APPROVED DRUG PRODUCT: CEFUROXIME AXETIL
Active Ingredient: CEFUROXIME AXETIL
Strength: EQ 125MG BASE
Dosage Form/Route: TABLET;ORAL
Application: A065118 | Product #001
Applicant: SUN PHARMACEUTICAL INDUSTRIES LTD
Approved: Apr 25, 2003 | RLD: No | RS: No | Type: DISCN